FAERS Safety Report 16199223 (Version 2)
Quarter: 2019Q3

REPORT INFORMATION
  Report Type: Spontaneous
  Country: PT (occurrence: PT)
  Receive Date: 20190415
  Receipt Date: 20190702
  Transmission Date: 20191004
  Serious: Yes (Life-Threatening)
  Sender: FDA-Public Use
  Company Number: PT-ACELRX PHARMACEUTICALS, INC-ACEL20192215

PATIENT
  Age: 56 Year
  Sex: Female
  Weight: 85 kg

DRUGS (5)
  1. PARACETAMOL [Concomitant]
     Active Substance: ACETAMINOPHEN
     Indication: PRODUCT USED FOR UNKNOWN INDICATION
     Dosage: UNKNOWN
     Route: 065
     Dates: start: 20190327
  2. ONDANSETRON [Concomitant]
     Active Substance: ONDANSETRON
     Indication: PRODUCT USED FOR UNKNOWN INDICATION
     Dosage: UNKNOWN
     Route: 065
     Dates: start: 20190327
  3. ZALVISO [Suspect]
     Active Substance: SUFENTANIL CITRATE
     Indication: POSTOPERATIVE ANALGESIA
     Route: 060
     Dates: start: 20190327, end: 20190328
  4. PARECOXIB [Concomitant]
     Active Substance: PARECOXIB
     Indication: PRODUCT USED FOR UNKNOWN INDICATION
     Dosage: UNKNOWN
     Route: 065
     Dates: start: 20190327
  5. METOCLOPRAMIDE. [Concomitant]
     Active Substance: METOCLOPRAMIDE
     Indication: PRODUCT USED FOR UNKNOWN INDICATION
     Dosage: UNKNOWN
     Route: 065
     Dates: start: 20190327

REACTIONS (9)
  - Altered state of consciousness [Recovered/Resolved]
  - Respiratory depression [Recovered/Resolved]
  - Hypoventilation [Recovered/Resolved]
  - Hyperhidrosis [Recovered/Resolved]
  - Respiratory acidosis [Recovered/Resolved]
  - Adverse drug reaction [Recovered/Resolved]
  - Miosis [Recovered/Resolved]
  - Dry mouth [Unknown]
  - Incorrect route of product administration [None]

NARRATIVE: CASE EVENT DATE: 20190328
